FAERS Safety Report 14606071 (Version 1)
Quarter: 2018Q1

REPORT INFORMATION
  Report Type: Spontaneous
  Country: IE (occurrence: IE)
  Receive Date: 20180307
  Receipt Date: 20180307
  Transmission Date: 20180509
  Serious: Yes (Life-Threatening, Hospitalization, Other)
  Sender: FDA-Public Use
  Company Number: IE-CIPLA LTD.-2018IE08452

PATIENT

DRUGS (19)
  1. IFOSFAMIDE. [Suspect]
     Active Substance: IFOSFAMIDE
     Dosage: UNK
     Route: 065
  2. LYRICA [Concomitant]
     Active Substance: PREGABALIN
     Indication: BACK PAIN
     Dosage: 50 MG, 8TH HOURLY
     Route: 048
  3. CARBOPLATIN. [Suspect]
     Active Substance: CARBOPLATIN
     Indication: NON-HODGKIN^S LYMPHOMA
     Dosage: 710 MG, DAILY (D2)
     Route: 042
  4. CARBOPLATIN. [Suspect]
     Active Substance: CARBOPLATIN
     Dosage: UNK
     Route: 042
  5. ETOPOSIDE. [Suspect]
     Active Substance: ETOPOSIDE
     Dosage: 220 MG, DAILY
     Route: 042
     Dates: start: 20171103, end: 20171105
  6. ADCETRIS [Suspect]
     Active Substance: BRENTUXIMAB VEDOTIN
     Indication: NON-HODGKIN^S LYMPHOMA
     Dosage: 165 MG, DAILY
     Route: 042
     Dates: start: 20171103, end: 20171103
  7. CYCLIZINE [Concomitant]
     Active Substance: CYCLIZINE
     Indication: PROPHYLAXIS
     Dosage: 50 MG, UNK (TDS ; AS NECESSARY)
     Route: 065
  8. METOCLOPRAMIDE. [Concomitant]
     Active Substance: METOCLOPRAMIDE
     Indication: PRODUCT USED FOR UNKNOWN INDICATION
     Dosage: 10 MG, 8TH HOURLY
     Route: 065
  9. IFOSFAMIDE. [Suspect]
     Active Substance: IFOSFAMIDE
     Dosage: UNK
     Route: 065
  10. MESNA. [Suspect]
     Active Substance: MESNA
     Dosage: 10900 MG, UNK (D2 + D3 2200MG - 3HRS, 6HRS, 9HRS POST OFOSFAMINDE)
     Route: 042
  11. LASIX [Concomitant]
     Active Substance: FUROSEMIDE
     Indication: FLUID RETENTION
     Dosage: 20-40MG; AS NECESSARY
     Route: 048
  12. IFOSFAMIDE. [Suspect]
     Active Substance: IFOSFAMIDE
     Indication: NON-HODGKIN^S LYMPHOMA
     Dosage: 10880 MG, UNK (D2)
     Route: 042
  13. MACUSHIELD [Concomitant]
     Active Substance: DIETARY SUPPLEMENT
     Indication: MACULAR DEGENERATION
     Dosage: UNK
     Route: 065
  14. VALTREX [Concomitant]
     Active Substance: VALACYCLOVIR HYDROCHLORIDE
     Indication: PROPHYLAXIS
     Dosage: 500 MG, 24 HOURLY
     Route: 048
  15. MESNA. [Suspect]
     Active Substance: MESNA
     Indication: NON-HODGKIN^S LYMPHOMA
     Dosage: 2200 MG, UNK (D3: 3HRS, 6HRS, 9HRS POST IFOSFAMIDE)
     Route: 042
  16. MYCOSTATIN [Suspect]
     Active Substance: NYSTATIN
     Indication: PROPHYLAXIS
     Dosage: 1 ML, UNK
     Route: 065
  17. NEPRAMEL [Concomitant]
     Indication: PROPHYLAXIS AGAINST GASTROINTESTINAL ULCER
     Dosage: 40 MG, 24 HOURLY
     Route: 048
  18. ALLOPURINOL. [Concomitant]
     Active Substance: ALLOPURINOL
     Indication: PROPHYLAXIS
     Dosage: 300 MG, 24 HOURLY
     Route: 048
  19. ETOPOSIDE. [Suspect]
     Active Substance: ETOPOSIDE
     Indication: NON-HODGKIN^S LYMPHOMA
     Dosage: UNK
     Route: 042

REACTIONS (3)
  - Acute hepatic failure [Recovering/Resolving]
  - Renal failure [Recovering/Resolving]
  - Dialysis [Recovering/Resolving]

NARRATIVE: CASE EVENT DATE: 20171111
